FAERS Safety Report 7433080-X (Version None)
Quarter: 2011Q2

REPORT INFORMATION
  Report Type: 
  Country: None (occurrence: None)
  Receive Date: 20110422
  Receipt Date: 20110414
  Transmission Date: 20111010
  Serious: Yes (Other)
  Sender: FDA-Public Use
  Company Number: US-ASTRAZENECA-2011SE21813

PATIENT
  Age: 27548 Day

DRUGS (10)
  1. NORMODYNE [Concomitant]
     Dosage: HALF TABLET PER DAY
     Route: 048
     Dates: start: 20090316
  2. TARKA [Concomitant]
     Dosage: 4 MG TO 240 MG 24 HR TAB, I TABLET PER DAY
     Route: 048
     Dates: start: 20100303
  3. LEVOTHYROXINE SODIUM [Concomitant]
     Route: 048
     Dates: start: 20081112
  4. SEROQUEL [Suspect]
     Route: 048
     Dates: start: 20081111
  5. PERSANTINE [Concomitant]
     Route: 048
     Dates: start: 20081111
  6. SIMVASTATIN [Concomitant]
     Route: 048
     Dates: start: 20090316
  7. HUMULIN R [Concomitant]
     Dosage: 70/30 100 UNIT/ML (70-30)
     Route: 058
  8. APRESOLINE [Concomitant]
     Route: 048
     Dates: start: 20100303
  9. SEROQUEL [Suspect]
     Route: 048
     Dates: start: 20081111
  10. ARICEPT [Concomitant]

REACTIONS (7)
  - DIABETIC NEUROPATHY [None]
  - DIABETIC VASCULAR DISORDER [None]
  - DIABETES MELLITUS [None]
  - DIABETIC EYE DISEASE [None]
  - DEMENTIA ALZHEIMER'S TYPE [None]
  - OVERWEIGHT [None]
  - DIABETIC NEPHROPATHY [None]
